FAERS Safety Report 16136615 (Version 1)
Quarter: 2019Q2

REPORT INFORMATION
  Report Type: Spontaneous
  Country: US (occurrence: US)
  Receive Date: 20190401
  Receipt Date: 20190401
  Transmission Date: 20190711
  Serious: No
  Sender: FDA-Public Use
  Company Number: US-009507513-1903USA001518

PATIENT
  Sex: Female
  Weight: 81.63 kg

DRUGS (10)
  1. ZETIA [Suspect]
     Active Substance: EZETIMIBE
     Route: 048
  2. PREDNISONE. [Suspect]
     Active Substance: PREDNISONE
     Dosage: 6 MG TABLET ONCE DAILY BY MOUTH
     Route: 048
     Dates: start: 201805, end: 201805
  3. LYRICA [Suspect]
     Active Substance: PREGABALIN
     Indication: POLYMYALGIA RHEUMATICA
     Dosage: 25MG CAPSULE IN THE MORNING AND 25MG CAPSULE AT NIGHT
     Route: 048
     Dates: start: 201804
  4. CYMBALTA [Concomitant]
     Active Substance: DULOXETINE HYDROCHLORIDE
     Indication: PAIN
     Dosage: 30 MG TABLET. THREE TABLETS ONCE DAILY BY MOUTH
     Route: 048
     Dates: start: 2014
  5. CYMBALTA [Concomitant]
     Active Substance: DULOXETINE HYDROCHLORIDE
     Indication: ANXIETY
  6. PREDNISONE. [Suspect]
     Active Substance: PREDNISONE
     Dosage: 5 MG TABLET ONCE DAILY BY MOUTH
     Route: 048
     Dates: start: 201806
  7. PHARMANEX CHOLESTIN (RED RICE YEAST) [Suspect]
     Active Substance: RED YEAST
     Dosage: UNK
     Dates: start: 2013
  8. LYRICA [Suspect]
     Active Substance: PREGABALIN
     Dosage: 50 MG CAPSULE ONCE DAILY BY MOUTH AT NIGHT
     Route: 048
  9. XARELTO [Concomitant]
     Active Substance: RIVAROXABAN
     Indication: ATRIAL FIBRILLATION
     Dosage: 20 MG TABLET ONCE DAILY BY MOUTH
     Route: 048
     Dates: start: 2013
  10. PREDNISONE. [Suspect]
     Active Substance: PREDNISONE
     Indication: POLYMYALGIA RHEUMATICA
     Dosage: 5 MG TABLET ONCE DAILY BY MOUTH
     Route: 048
     Dates: start: 201611, end: 201804

REACTIONS (8)
  - Gait inability [Unknown]
  - Somnolence [Unknown]
  - Blood test abnormal [Unknown]
  - Bradyphrenia [Unknown]
  - Pain in extremity [Not Recovered/Not Resolved]
  - Weight increased [Unknown]
  - Inflammation [Unknown]
  - Feeling abnormal [Unknown]

NARRATIVE: CASE EVENT DATE: 2018
